FAERS Safety Report 21316095 (Version 3)
Quarter: 2022Q3

REPORT INFORMATION
  Report Type: Spontaneous
  Country: DE (occurrence: DE)
  Receive Date: 20220910
  Receipt Date: 20220916
  Transmission Date: 20221027
  Serious: Yes (Hospitalization)
  Sender: FDA-Public Use
  Company Number: DE-SA-2022SA348860

PATIENT
  Age: 39 Year
  Sex: Male

DRUGS (1)
  1. DUPIXENT [Suspect]
     Active Substance: DUPILUMAB
     Indication: Neurodermatitis
     Dosage: 300 MG
     Dates: start: 20210302, end: 20220703

REACTIONS (3)
  - Anogenital warts [Recovered/Resolved]
  - Vocal cord leukoplakia [Recovered/Resolved]
  - Cranial operation [Recovered/Resolved]

NARRATIVE: CASE EVENT DATE: 20210623
